FAERS Safety Report 16456310 (Version 1)
Quarter: 2019Q2

REPORT INFORMATION
  Report Type: Spontaneous
  Country: US (occurrence: US)
  Receive Date: 20190620
  Receipt Date: 20190620
  Transmission Date: 20190711
  Serious: No
  Sender: FDA-Public Use
  Company Number: US-TEVA-2019-US-1063080

PATIENT
  Age: 49 Year
  Sex: Male

DRUGS (3)
  1. BUPRENORPHINE PATCHES [Suspect]
     Active Substance: BUPRENORPHINE
     Indication: NECK PAIN
     Route: 062
     Dates: start: 201812
  2. BUPRENORPHINE PATCHES [Suspect]
     Active Substance: BUPRENORPHINE
     Indication: PAIN
  3. BUPRENORPHINE PATCHES [Suspect]
     Active Substance: BUPRENORPHINE
     Indication: BACK PAIN

REACTIONS (3)
  - Product adhesion issue [Unknown]
  - Application site pruritus [Unknown]
  - Drug ineffective [Unknown]

NARRATIVE: CASE EVENT DATE: 201905
